FAERS Safety Report 25272325 (Version 1)
Quarter: 2025Q2

REPORT INFORMATION
  Report Type: Spontaneous
  Country: CN (occurrence: CN)
  Receive Date: 20250506
  Receipt Date: 20250506
  Transmission Date: 20250717
  Serious: Yes (Hospitalization)
  Sender: SANOFI AVENTIS
  Company Number: CN-SA-2025SA125412

PATIENT
  Age: 39 Year
  Sex: Male
  Weight: 82 kg

DRUGS (6)
  1. CLOPIDOGREL BISULFATE [Suspect]
     Active Substance: CLOPIDOGREL BISULFATE
     Indication: Platelet aggregation inhibition
     Dosage: 100MG QD
     Route: 048
     Dates: start: 20250313, end: 20250320
  2. ATORVASTATIN CALCIUM [Suspect]
     Active Substance: ATORVASTATIN CALCIUM
     Indication: Lipids abnormal
     Dosage: 20 MG, QD
     Route: 048
     Dates: start: 20250313, end: 20250320
  3. ASPIRIN [Suspect]
     Active Substance: ASPIRIN
     Indication: Platelet aggregation inhibition
     Dosage: 100 MG, QD
     Route: 048
     Dates: start: 20250313, end: 20250320
  4. NICOTINIC ACID [Suspect]
     Active Substance: NIACIN
     Indication: Cardiovascular disorder
     Dosage: 25 MG QD
     Route: 041
     Dates: start: 20250313, end: 20250320
  5. BUTYLPHTHALIDE [Suspect]
     Active Substance: BUTYLPHTHALIDE
     Indication: Cardiovascular disorder
     Dosage: 100ML QD
     Route: 041
     Dates: start: 20250313, end: 20250320
  6. LEVAMLODIPINE BESYLATE [Suspect]
     Active Substance: LEVAMLODIPINE BESYLATE
     Indication: Hypertension
     Dosage: 2.5MG QD
     Route: 048
     Dates: start: 20250319, end: 20250320

REACTIONS (4)
  - Drug eruption [Recovering/Resolving]
  - Rash [Recovering/Resolving]
  - Rash macular [Recovering/Resolving]
  - Erythema [Recovering/Resolving]

NARRATIVE: CASE EVENT DATE: 20250319
